FAERS Safety Report 6885984-4 (Version None)
Quarter: 2010Q3

REPORT INFORMATION
  Report Type: 
  Country: None (occurrence: None)
  Receive Date: 20100729
  Receipt Date: 20080801
  Transmission Date: 20110219
  Serious: No
  Sender: FDA-Public Use
  Company Number: US-PFIZER INC-2008064803

PATIENT
  Sex: Female
  Weight: 66.8 kg

DRUGS (1)
  1. CELEBREX [Suspect]
     Dates: start: 20080301

REACTIONS (1)
  - DRUG INEFFECTIVE [None]
